FAERS Safety Report 16108652 (Version 1)
Quarter: 2019Q1

REPORT INFORMATION
  Report Type: Spontaneous
  Country: DK (occurrence: DK)
  Receive Date: 20190323
  Receipt Date: 20190323
  Transmission Date: 20190418
  Serious: Yes (Disabling)
  Sender: FDA-Public Use
  Company Number: DK-ACCORD-114542

PATIENT
  Age: 41 Year
  Sex: Female

DRUGS (2)
  1. METHOTREXATE. [Suspect]
     Active Substance: METHOTREXATE
     Indication: SKIN DISORDER
     Dosage: 6-7 TABLETS ONCE A WEEK. STRENGTH: 2.5 MG.
     Route: 048
     Dates: start: 201601
  2. LUTINUS [Suspect]
     Active Substance: PROGESTERONE
     Indication: INFERTILITY
     Route: 067
     Dates: start: 20141129, end: 20150611

REACTIONS (12)
  - Nodule [Unknown]
  - Urinary tract infection [Unknown]
  - Inflammation [Not Recovered/Not Resolved]
  - Eczema [Not Recovered/Not Resolved]
  - Pruritus [Not Recovered/Not Resolved]
  - Social avoidant behaviour [Unknown]
  - Rash erythematous [Not Recovered/Not Resolved]
  - Poor quality sleep [Unknown]
  - Pyelitis [Recovered/Resolved]
  - Blister [Unknown]
  - Autoimmune dermatitis [Unknown]
  - Subcutaneous abscess [Not Recovered/Not Resolved]

NARRATIVE: CASE EVENT DATE: 201412
